FAERS Safety Report 8245895-9 (Version None)
Quarter: 2012Q1

REPORT INFORMATION
  Report Type: 
  Country: None (occurrence: None)
  Receive Date: 20120328
  Receipt Date: 20120328
  Transmission Date: 20120608
  Serious: Yes (Hospitalization)
  Sender: FDA-Public Use
  Company Number: None

PATIENT
  Age: 86 Year
  Sex: Male
  Weight: 85.9 kg

DRUGS (1)
  1. HYDROCHLOROTHIAZIDE [Suspect]
     Dosage: 25 MG EVERY DAY PO
     Route: 048
     Dates: start: 20101105, end: 20110622

REACTIONS (2)
  - HYPOTENSION [None]
  - DIZZINESS [None]
